FAERS Safety Report 5726578-3 (Version None)
Quarter: 2008Q2

REPORT INFORMATION
  Report Type: 
  Country: None (occurrence: None)
  Receive Date: 20080502
  Receipt Date: 20080422
  Transmission Date: 20081010
  Serious: Yes (Life-Threatening)
  Sender: FDA-Public Use
  Company Number: KR-ROCHE-557901

PATIENT
  Sex: Female

DRUGS (10)
  1. CAPECITABINE [Suspect]
     Dosage: THERAPY WAS TEMPORARILY INTERRUPTED.
     Route: 048
     Dates: start: 20071030, end: 20080408
  2. CAPECITABINE [Suspect]
     Route: 048
     Dates: start: 20080409
  3. OXALIPLATIN [Suspect]
     Dosage: DOSAGE FORM REPORTED AS 'VIAL' AND FREQUENCY REPORTED AS 'QD'. THERAPY WAS PERMANENTLY DISCONTINUED.
     Route: 042
     Dates: start: 20071030, end: 20080408
  4. DEXAMETHASONE [Concomitant]
     Dates: start: 20071030, end: 20080408
  5. GRANISETRON HCL [Concomitant]
     Dates: start: 20071030, end: 20080408
  6. 1 CONCOMITANT DRUG [Concomitant]
     Dosage: DRUG NAME REPORTED AS 'PHASYME COMPLEX' AND TDD AS '3/TABLET'.
     Dates: start: 20071126, end: 20071209
  7. FEROBA-YOU [Concomitant]
     Dosage: DRUG NAME REPORTED AS 'FEROBA-YOU SR' AND TDD AS '2/TABLET'.
     Dates: start: 20080310
  8. FEROBA-YOU [Concomitant]
     Dosage: DRUG NAME REPORTED AS 'FEROBA-YOU SR' AND TDD AS '2/TABLET'.
     Dates: start: 20080310
  9. FEROBA-YOU [Concomitant]
     Dosage: DRUG NAME REPORTED AS 'FEROBA-YOU SR' AND TDD AS '2/TABLET'.
     Dates: start: 20080310
  10. FEROBA-YOU [Concomitant]
     Dosage: DRUG NAME REPORTED AS 'FEROBA-YOU SR' AND TDD AS '2/TABLET'.
     Dates: start: 20080310

REACTIONS (1)
  - ANAPHYLACTIC SHOCK [None]
